FAERS Safety Report 18568509 (Version 2)
Quarter: 2020Q4

REPORT INFORMATION
  Report Type: Spontaneous
  Country: US (occurrence: US)
  Receive Date: 20201202
  Receipt Date: 20201224
  Transmission Date: 20210114
  Serious: Yes (Other)
  Sender: FDA-Public Use
  Company Number: US-SUN PHARMACEUTICAL INDUSTRIES LTD-2020R1-269362

PATIENT
  Sex: Female

DRUGS (1)
  1. BYNFEZIA PEN [Suspect]
     Active Substance: OCTREOTIDE ACETATE
     Indication: FLUSHING
     Dosage: UNK UNK, TID
     Route: 058

REACTIONS (9)
  - Diarrhoea [Unknown]
  - Migraine [Unknown]
  - Swelling [Recovering/Resolving]
  - Fluid retention [Unknown]
  - Blood glucose fluctuation [Unknown]
  - Coagulopathy [Unknown]
  - Anaphylactic reaction [Unknown]
  - Weight increased [Unknown]
  - Flushing [Not Recovered/Not Resolved]
